FAERS Safety Report 13399899 (Version 1)
Quarter: 2017Q2

REPORT INFORMATION
  Report Type: Spontaneous
  Country: US (occurrence: US)
  Receive Date: 20170404
  Receipt Date: 20170404
  Transmission Date: 20170830
  Serious: Yes (Hospitalization)
  Sender: FDA-Public Use
  Company Number: None

PATIENT
  Age: 52 Year
  Sex: Male

DRUGS (12)
  1. NEXIUM [Concomitant]
     Active Substance: ESOMEPRAZOLE MAGNESIUM
  2. HYDROCHLOROT [Concomitant]
     Active Substance: HYDROCHLOROTHIAZIDE
  3. PENTOXIFYLLI [Concomitant]
  4. ADCIRCA [Suspect]
     Active Substance: TADALAFIL
     Indication: PULMONARY ARTERIAL HYPERTENSION
     Route: 048
     Dates: start: 20160603
  5. AMLODIPINE [Concomitant]
     Active Substance: AMLODIPINE BESYLATE
  6. METHOTREXATE. [Concomitant]
     Active Substance: METHOTREXATE
  7. NORVASC [Concomitant]
     Active Substance: AMLODIPINE BESYLATE
  8. ASPIRIN. [Concomitant]
     Active Substance: ASPIRIN
  9. FOLIC ACID. [Concomitant]
     Active Substance: FOLIC ACID
  10. TRACLEER [Concomitant]
     Active Substance: BOSENTAN
  11. TRAMADOL. [Concomitant]
     Active Substance: TRAMADOL
  12. CELEBREX [Concomitant]
     Active Substance: CELECOXIB

REACTIONS (1)
  - Spinal operation [None]

NARRATIVE: CASE EVENT DATE: 20170307
